FAERS Safety Report 15419149 (Version 1)
Quarter: 2018Q3

REPORT INFORMATION
  Report Type: Report from Study
  Country: US (occurrence: US)
  Receive Date: 20180924
  Receipt Date: 20180924
  Transmission Date: 20181010
  Serious: No
  Sender: FDA-Public Use
  Company Number: US-ALEXION PHARMACEUTICALS INC.-A201812323

PATIENT
  Age: 22 Year
  Sex: Male

DRUGS (1)
  1. SOLIRIS [Suspect]
     Active Substance: ECULIZUMAB
     Indication: PAROXYSMAL NOCTURNAL HAEMOGLOBINURIA
     Dosage: 900 MG, Q2W
     Route: 065

REACTIONS (12)
  - Red blood cell count decreased [Unknown]
  - Ocular icterus [Unknown]
  - Blood creatinine increased [Unknown]
  - Mean cell volume increased [Unknown]
  - Mean cell haemoglobin increased [Unknown]
  - Skin striae [Unknown]
  - Blood potassium decreased [Unknown]
  - Cushingoid [Recovering/Resolving]
  - Haemoglobin decreased [Unknown]
  - Haematocrit decreased [Unknown]
  - Blood lactate dehydrogenase increased [Unknown]
  - Blood alkaline phosphatase decreased [Unknown]

NARRATIVE: CASE EVENT DATE: 20180706
